FAERS Safety Report 8395479-7 (Version None)
Quarter: 2012Q2

REPORT INFORMATION
  Report Type: 
  Country: None (occurrence: None)
  Receive Date: 20120530
  Receipt Date: 20120518
  Transmission Date: 20120825
  Serious: No
  Sender: FDA-Public Use
  Company Number: US-GLAXOSMITHKLINE-A0886129A

PATIENT
  Age: 70 Year
  Sex: Male

DRUGS (10)
  1. VENTOLIN [Suspect]
     Indication: PULMONARY CONGESTION
     Dosage: 1PUFF AS REQUIRED
     Route: 055
     Dates: start: 20090101
  2. METFORMIN HCL [Concomitant]
  3. WATER PILL [Concomitant]
  4. ALBUTEROL [Suspect]
     Indication: PRODUCT USED FOR UNKNOWN INDICATION
     Route: 055
  5. LABETALOL HCL [Concomitant]
  6. HYDROCHLOROTHIAZIDE [Concomitant]
  7. ADVAIR DISKUS 100/50 [Suspect]
     Indication: PRODUCT USED FOR UNKNOWN INDICATION
     Route: 055
     Dates: start: 20080101
  8. ATENOLOL [Concomitant]
  9. ACTOS [Concomitant]
  10. LISINOPRIL [Concomitant]

REACTIONS (10)
  - DRUG ADMINISTRATION ERROR [None]
  - GLOSSODYNIA [None]
  - RESPIRATORY TRACT IRRITATION [None]
  - MEDICATION RESIDUE [None]
  - DYSPNOEA [None]
  - WHEEZING [None]
  - THERAPEUTIC RESPONSE DECREASED [None]
  - DRUG INEFFECTIVE [None]
  - PRODUCT QUALITY ISSUE [None]
  - PRODUCT TASTE ABNORMAL [None]
